FAERS Safety Report 19666266 (Version 1)
Quarter: 2021Q3

REPORT INFORMATION
  Report Type: Spontaneous
  Country: US (occurrence: US)
  Receive Date: 20210806
  Receipt Date: 20210806
  Transmission Date: 20211014
  Serious: No
  Sender: FDA-Public Use
  Company Number: None

PATIENT
  Age: 58 Year
  Sex: Female

DRUGS (3)
  1. TALTZ [Suspect]
     Active Substance: IXEKIZUMAB
     Indication: POLYARTHRITIS
  2. TALTZ [Suspect]
     Active Substance: IXEKIZUMAB
     Indication: POLYARTHRITIS
     Dosage: ?          OTHER FREQUENCY:WEEK 12;?
     Route: 058
     Dates: start: 201909
  3. TALTZ [Suspect]
     Active Substance: IXEKIZUMAB
     Indication: PSORIASIS
     Dosage: ?          OTHER FREQUENCY:WEEK 12;?
     Route: 058
     Dates: start: 201909

REACTIONS (3)
  - Rash [None]
  - Infection [None]
  - Therapy interrupted [None]
